FAERS Safety Report 7053201-0 (Version None)
Quarter: 2010Q4

REPORT INFORMATION
  Report Type: 
  Country: None (occurrence: None)
  Receive Date: 20101020
  Receipt Date: 20101014
  Transmission Date: 20110411
  Serious: Yes (Life-Threatening, Hospitalization)
  Sender: FDA-Public Use
  Company Number: GB-JNJFOC-20101002678

PATIENT
  Age: 26 Year
  Sex: Female
  Weight: 62 kg

DRUGS (6)
  1. GOLIMUMAB [Suspect]
     Indication: RHEUMATOID ARTHRITIS
     Dosage: 3 DOSES
     Route: 058
  2. METHOTREXATE [Suspect]
     Indication: RHEUMATOID ARTHRITIS
     Route: 048
  3. HYDROXYCHLOROQUINE [Concomitant]
     Indication: RHEUMATOID ARTHRITIS
  4. FOLIC ACID [Concomitant]
     Indication: RHEUMATOID ARTHRITIS
     Route: 048
  5. BRICANYL [Concomitant]
     Indication: ASTHMA
     Route: 055
  6. SYMBICORT [Concomitant]
     Indication: ASTHMA
     Route: 055

REACTIONS (2)
  - LIVER DISORDER [None]
  - VARICES OESOPHAGEAL [None]
